FAERS Safety Report 7464005-9 (Version None)
Quarter: 2011Q2

REPORT INFORMATION
  Report Type: 
  Country: None (occurrence: None)
  Receive Date: 20110506
  Receipt Date: 20110502
  Transmission Date: 20111010
  Serious: Yes (Other)
  Sender: FDA-Public Use
  Company Number: US-ABBOTT-11P-163-0723188-00

PATIENT
  Sex: Male
  Weight: 63.56 kg

DRUGS (6)
  1. ATENOLOL [Concomitant]
     Indication: PALPITATIONS
  2. HUMIRA [Suspect]
     Indication: ARTHRITIS
  3. TRIAMTERENE AND HYDROCHLOROTHIAZIDE [Concomitant]
     Indication: OEDEMA PERIPHERAL
     Dosage: 25MG/37.5MG
  4. NAPROSIN [Concomitant]
     Indication: ARTHRITIS
  5. VITAMIN D [Concomitant]
     Indication: PRODUCT USED FOR UNKNOWN INDICATION
  6. HUMIRA [Suspect]
     Indication: PSORIASIS
     Dates: end: 20110301

REACTIONS (4)
  - PULMONARY EMBOLISM [None]
  - PERIPHERAL EMBOLISM [None]
  - DRUG INEFFECTIVE [None]
  - PSORIASIS [None]
